FAERS Safety Report 8221246-0 (Version None)
Quarter: 2012Q1

REPORT INFORMATION
  Report Type: 
  Country: None (occurrence: None)
  Receive Date: 20120320
  Receipt Date: 20120312
  Transmission Date: 20120608
  Serious: Yes (Other)
  Sender: FDA-Public Use
  Company Number: PHHY2012JP023175

PATIENT
  Age: 67 Year
  Sex: Female

DRUGS (1)
  1. IMATINIB MESYLATE [Suspect]

REACTIONS (4)
  - WEIGHT INCREASED [None]
  - THROMBOCYTOPENIA [None]
  - FLUID RETENTION [None]
  - SKIN DISORDER [None]
